FAERS Safety Report 16217298 (Version 1)
Quarter: 2019Q2

REPORT INFORMATION
  Report Type: Spontaneous
  Country: RO (occurrence: RO)
  Receive Date: 20190419
  Receipt Date: 20190419
  Transmission Date: 20190711
  Serious: Yes (Hospitalization)
  Sender: FDA-Public Use
  Company Number: RO-PFIZER INC-2019118738

PATIENT
  Age: 51 Year
  Sex: Male
  Weight: 63 kg

DRUGS (3)
  1. SUTENT [Suspect]
     Active Substance: SUNITINIB MALATE
     Indication: METASTATIC RENAL CELL CARCINOMA
     Dosage: 50 MG DAY CYCLIC 28 DAYS ON TREATMENT WITH 14 DAYS PAUSE
     Route: 048
     Dates: start: 20161112, end: 20190315
  2. SUTENT [Suspect]
     Active Substance: SUNITINIB MALATE
     Dosage: 37.50 MG DAY CYCLIC 28 DAYS ON TREATMENT WITH 14 DAYS PAUSE
     Route: 048
     Dates: start: 20190315, end: 20190323
  3. METOPROLOL. [Concomitant]
     Active Substance: METOPROLOL

REACTIONS (4)
  - Constipation [Not Recovered/Not Resolved]
  - Weight decreased [Not Recovered/Not Resolved]
  - Hypoaesthesia [Not Recovered/Not Resolved]
  - Neoplasm progression [Not Recovered/Not Resolved]

NARRATIVE: CASE EVENT DATE: 201903
